APPROVED DRUG PRODUCT: NAFAZAIR
Active Ingredient: NAPHAZOLINE HYDROCHLORIDE
Strength: 0.1%
Dosage Form/Route: SOLUTION/DROPS;OPHTHALMIC
Application: A088101 | Product #001
Applicant: PHARMAFAIR INC
Approved: Apr 15, 1983 | RLD: No | RS: No | Type: DISCN